FAERS Safety Report 18850476 (Version 4)
Quarter: 2021Q2

REPORT INFORMATION
  Report Type: Report from Study
  Country: GB (occurrence: GB)
  Receive Date: 20210204
  Receipt Date: 20210520
  Transmission Date: 20210717
  Serious: Yes (Hospitalization, Other)
  Sender: FDA-Public Use
  Company Number: NVSC2020GB206397

PATIENT
  Age: 30 Year
  Sex: Female

DRUGS (8)
  1. PREDNISOLONE. [Concomitant]
     Active Substance: PREDNISOLONE
     Indication: PRODUCT USED FOR UNKNOWN INDICATION
     Dosage: UNK
     Route: 065
  2. VITAMIN B12 [Concomitant]
     Active Substance: CYANOCOBALAMIN
     Indication: PRODUCT USED FOR UNKNOWN INDICATION
     Dosage: UNK UNK, UNKNOWN
     Route: 065
  3. HYRIMOZ [Suspect]
     Active Substance: ADALIMUMAB-ADAZ
     Dosage: UNK (40MG/0.8 ML) (FORTNIGHTLY)
     Route: 065
  4. PREDNISOLONE. [Concomitant]
     Active Substance: PREDNISOLONE
     Dosage: UNK
     Route: 065
  5. HYRIMOZ [Suspect]
     Active Substance: ADALIMUMAB-ADAZ
     Indication: RHEUMATOID ARTHRITIS
     Dosage: 40 MG, QW (0.8ML)
     Route: 058
     Dates: start: 20200528
  6. LEFLUNOMIDE. [Concomitant]
     Active Substance: LEFLUNOMIDE
     Dosage: UNK
     Route: 065
  7. HYRIMOZ [Suspect]
     Active Substance: ADALIMUMAB-ADAZ
     Dosage: 40 MG, Q2W (FORTNIGHTLY/EVERY OTHER WEEK)
     Route: 058
  8. LEFLUNOMIDE. [Concomitant]
     Active Substance: LEFLUNOMIDE
     Indication: PRODUCT USED FOR UNKNOWN INDICATION
     Dosage: UNK
     Route: 065

REACTIONS (24)
  - Upper respiratory tract infection [Unknown]
  - Pain [Unknown]
  - Arthralgia [Unknown]
  - Mobility decreased [Unknown]
  - Polyuria [Unknown]
  - Liver function test increased [Unknown]
  - Fatigue [Not Recovered/Not Resolved]
  - Gait disturbance [Unknown]
  - Abdominal discomfort [Unknown]
  - Weight abnormal [Unknown]
  - Staphylococcal infection [Unknown]
  - Joint stiffness [Unknown]
  - Streptococcal infection [Unknown]
  - Postural orthostatic tachycardia syndrome [Unknown]
  - Insomnia [Unknown]
  - Dyspnoea [Unknown]
  - Painful respiration [Unknown]
  - Bladder discomfort [Unknown]
  - Weight increased [Unknown]
  - Pleurisy [Unknown]
  - Cystitis [Unknown]
  - Rheumatoid arthritis [Unknown]
  - Endocrine disorder [Unknown]
  - Illness [Unknown]
